FAERS Safety Report 4938561-6 (Version None)
Quarter: 2006Q1

REPORT INFORMATION
  Report Type: 
  Country: None (occurrence: None)
  Receive Date: 20060306
  Receipt Date: 20060217
  Transmission Date: 20060701
  Serious: Yes (Hospitalization)
  Sender: FDA-Public Use
  Company Number: US200602003814

PATIENT
  Age: 40 Year
  Sex: Female
  Weight: 56.2 kg

DRUGS (3)
  1. CYMBALTA [Suspect]
     Indication: NERVE INJURY
     Dosage: 60 MG, DAILY (1/D), UNK
     Dates: start: 20051001
  2. ADVAIR DISKUS 100/50 [Concomitant]
  3. AZMACORT [Concomitant]

REACTIONS (15)
  - BALANCE DISORDER [None]
  - BLOOD PRESSURE INCREASED [None]
  - CHEST PAIN [None]
  - DIZZINESS [None]
  - DRUG EFFECT DECREASED [None]
  - DRUG TOLERANCE [None]
  - DYSSTASIA [None]
  - EAR PAIN [None]
  - FEELING ABNORMAL [None]
  - HEADACHE [None]
  - HYPOAESTHESIA [None]
  - NEURALGIA [None]
  - PARAESTHESIA [None]
  - VERTIGO [None]
  - VERTIGO POSITIONAL [None]
